FAERS Safety Report 4958325-7 (Version None)
Quarter: 2006Q1

REPORT INFORMATION
  Report Type: 
  Country: None (occurrence: None)
  Receive Date: 20060330
  Receipt Date: 20060322
  Transmission Date: 20060701
  Serious: Yes (Death, Hospitalization)
  Sender: FDA-Public Use
  Company Number: US-SANOFI-SYNTHELABO-A03200601674

PATIENT
  Sex: Male
  Weight: 115.7 kg

DRUGS (9)
  1. OXALIPLATIN [Suspect]
     Route: 042
     Dates: start: 20051227, end: 20051227
  2. LEUCOVORIN [Suspect]
     Route: 042
     Dates: start: 20051227, end: 20051227
  3. ZOFRAN [Concomitant]
     Route: 042
     Dates: start: 20051227, end: 20051227
  4. ATIVAN [Concomitant]
     Route: 042
     Dates: start: 20051227, end: 20051227
  5. DECADRON SRC [Concomitant]
     Route: 042
     Dates: start: 20051227, end: 20051227
  6. MAGNESIUM [Concomitant]
     Route: 042
     Dates: start: 20051227, end: 20051227
  7. CALCIUM GLUCONATE [Concomitant]
     Route: 042
     Dates: start: 20051227, end: 20051227
  8. FLUOROURACIL [Concomitant]
     Dosage: BOLUS FOLLOWED BY CONTINUOUS INFUSION FOR 2 DAYS
     Route: 042
  9. AVASTIN [Concomitant]
     Route: 042

REACTIONS (7)
  - ABDOMINAL PAIN [None]
  - BLOOD PRESSURE DECREASED [None]
  - BLOOD SODIUM DECREASED [None]
  - CARDIAC ARREST [None]
  - HEART RATE DECREASED [None]
  - LOSS OF CONSCIOUSNESS [None]
  - PLATELET COUNT DECREASED [None]
